FAERS Safety Report 6303309-X (Version None)
Quarter: 2009Q3

REPORT INFORMATION
  Report Type: 
  Country: None (occurrence: None)
  Receive Date: 20090810
  Receipt Date: 20090417
  Transmission Date: 20100115
  Serious: No
  Sender: FDA-Public Use
  Company Number: A0780600A

PATIENT

DRUGS (1)
  1. TREXIMET [Suspect]
     Indication: MIGRAINE
     Dosage: 1TAB AS REQUIRED
     Route: 048

REACTIONS (2)
  - DRUG INEFFECTIVE [None]
  - PAIN [None]
